FAERS Safety Report 8030174-5 (Version None)
Quarter: 2012Q1

REPORT INFORMATION
  Report Type: 
  Country: None (occurrence: None)
  Receive Date: 20120109
  Receipt Date: 20110321
  Transmission Date: 20120608
  Serious: Yes (Hospitalization)
  Sender: FDA-Public Use
  Company Number: DE-EISAI INC-E7273-00219-SPO-DE

PATIENT
  Sex: Male

DRUGS (8)
  1. AMLODIPINE [Concomitant]
  2. TARGRETIN [Suspect]
     Route: 048
  3. RAMIPRIL [Concomitant]
  4. TARGRETIN [Suspect]
     Route: 048
     Dates: start: 20080101
  5. PANTOPRAZOLE [Concomitant]
  6. MAPROTILINE [Concomitant]
  7. TARGRETIN [Suspect]
     Route: 048
     Dates: start: 20050201, end: 20080101
  8. METOCLOPRAMIDE [Concomitant]

REACTIONS (1)
  - DELIRIUM [None]
